FAERS Safety Report 19802380 (Version 1)
Quarter: 2021Q3

REPORT INFORMATION
  Report Type: Spontaneous
  Country: US (occurrence: US)
  Receive Date: 20210907
  Receipt Date: 20210907
  Transmission Date: 20211014
  Serious: No
  Sender: FDA-Public Use
  Company Number: None

PATIENT
  Age: 67 Year
  Sex: Female
  Weight: 75 kg

DRUGS (15)
  1. CANNABIDIOL [Concomitant]
     Active Substance: CANNABIDIOL
  2. CALCIUM CARBONATE. [Concomitant]
     Active Substance: CALCIUM CARBONATE
  3. IBRANCE [Suspect]
     Active Substance: PALBOCICLIB
     Indication: BREAST CANCER
     Dosage: OTHER FREQUENCY:QD FOR 21/28 DAYS;?
     Route: 048
     Dates: start: 20210223
  4. PERCOCET [Concomitant]
     Active Substance: ACETAMINOPHEN\OXYCODONE HYDROCHLORIDE
  5. MIRALAX [Concomitant]
     Active Substance: POLYETHYLENE GLYCOL 3350
  6. DULCOLAX NOS [Concomitant]
     Active Substance: BISACODYL OR DOCUSATE SODIUM
  7. ANASTROZOLE 1MG [Concomitant]
     Active Substance: ANASTROZOLE
  8. KEFLEX [Concomitant]
     Active Substance: CEPHALEXIN
  9. FISH OIL [Concomitant]
     Active Substance: FISH OIL
  10. VITAMIN K2 [Concomitant]
     Active Substance: MENAQUINONE 6
  11. VITAMIN B12 [Concomitant]
     Active Substance: CYANOCOBALAMIN
  12. VITAMIN B3 [Concomitant]
     Active Substance: NIACIN
  13. MORPHINE SULFATE ER 15MG [Concomitant]
     Active Substance: MORPHINE SULFATE
  14. NICODERM CQ [Concomitant]
     Active Substance: NICOTINE
  15. PROCHLORPERAZINE 10MG [Concomitant]

REACTIONS (2)
  - Diarrhoea [None]
  - COVID-19 [None]

NARRATIVE: CASE EVENT DATE: 20210907
